FAERS Safety Report 4647139-3 (Version None)
Quarter: 2005Q2

REPORT INFORMATION
  Report Type: 
  Country: None (occurrence: None)
  Receive Date: 20050428
  Receipt Date: 20050419
  Transmission Date: 20051028
  Serious: Yes (Life-Threatening)
  Sender: FDA-Public Use
  Company Number: AU-JNJFOC-20050304275

PATIENT
  Age: 33 Year
  Sex: Male
  Weight: 75 kg

DRUGS (7)
  1. REMICADE [Suspect]
     Route: 042
  2. PHENERGAN [Concomitant]
  3. HYDROCORTISONE [Concomitant]
  4. SALOFALK [Concomitant]
  5. PREDNISOLONE [Concomitant]
  6. ARISTOCORT [Concomitant]
  7. MS CONTIN [Concomitant]

REACTIONS (7)
  - CHEST DISCOMFORT [None]
  - DYSPNOEA [None]
  - FLUSHING [None]
  - HYPERHIDROSIS [None]
  - HYPOXIA [None]
  - INFUSION RELATED REACTION [None]
  - NAUSEA [None]
